FAERS Safety Report 13462508 (Version 6)
Quarter: 2017Q2

REPORT INFORMATION
  Report Type: Report from Study
  Country: US (occurrence: US)
  Receive Date: 20170420
  Receipt Date: 20170622
  Transmission Date: 20170830
  Serious: Yes (Other)
  Sender: FDA-Public Use
  Company Number: US-PFIZER INC-2017170902

PATIENT
  Age: 50 Year
  Sex: Female

DRUGS (2)
  1. IBRANCE [Suspect]
     Active Substance: PALBOCICLIB
     Dosage: 125 MG, DAILY
     Route: 048
     Dates: start: 20170405
  2. IBRANCE [Suspect]
     Active Substance: PALBOCICLIB
     Indication: BREAST CANCER
     Dosage: 125 MG, 1X/DAY
     Route: 048
     Dates: start: 20170405

REACTIONS (9)
  - Alopecia [Unknown]
  - White blood cell count decreased [Unknown]
  - Bone marrow failure [Unknown]
  - Nausea [Recovering/Resolving]
  - Dysgeusia [Unknown]
  - Fatigue [Unknown]
  - Constipation [Unknown]
  - Decreased appetite [Unknown]
  - Back pain [Unknown]

NARRATIVE: CASE EVENT DATE: 201704
